FAERS Safety Report 4711038-9 (Version None)
Quarter: 2005Q3

REPORT INFORMATION
  Report Type: 
  Country: None (occurrence: None)
  Receive Date: 20050708
  Receipt Date: 20050628
  Transmission Date: 20060218
  Serious: Yes (Life-Threatening, Hospitalization, Other)
  Sender: FDA-Public Use
  Company Number: 2005081154

PATIENT
  Age: 67 Year
  Sex: Female

DRUGS (12)
  1. LIPITOR [Suspect]
     Indication: HYPERLIPIDAEMIA
     Dosage: 10 MG (1 IN 1 D), ORAL
     Route: 048
     Dates: end: 20030704
  2. CEFDINIR [Suspect]
     Indication: BACTERIAL INFECTION
     Dosage: 100 MG (1 IN 1 D), ORAL
     Route: 048
     Dates: start: 20030701, end: 20030701
  3. FAMOTIDINE [Suspect]
     Indication: GASTRITIS
     Dosage: 10 MG (1 IN 1 D), ORAL
     Route: 048
     Dates: start: 20030613, end: 20030702
  4. LISINOPRIL [Suspect]
     Indication: HYPERTENSION
     Dosage: 10 MG (1 IN 1 D), ORAL
     Route: 048
     Dates: start: 20030130, end: 20030703
  5. ALLOPURINOL [Suspect]
     Indication: HYPERURICAEMIA
     Dosage: 100 MG (1 IN 1 D), ORAL
     Route: 048
     Dates: start: 20030624, end: 20030702
  6. WARFARIN SODIUM [Suspect]
     Indication: GLOMERULONEPHRITIS PROLIFERATIVE
     Dosage: ORAL
     Route: 048
     Dates: start: 20030620, end: 20030702
  7. CEFOTIAM (CEFOTIAM) [Concomitant]
  8. ACETAMINOPHEN [Concomitant]
  9. TEPRENONE (TEPRENONE) [Concomitant]
  10. ASPIRIN [Concomitant]
  11. AMLODIPINE [Concomitant]
  12. BROTIZOLAM (BROTIZOLAM) [Concomitant]

REACTIONS (14)
  - BACTERIAL INFECTION [None]
  - BLOOD URINE PRESENT [None]
  - CONDITION AGGRAVATED [None]
  - GASTRITIS [None]
  - GLOMERULONEPHRITIS PROLIFERATIVE [None]
  - HAEMODIALYSIS [None]
  - LIVER DISORDER [None]
  - LYMPHOCYTE STIMULATION TEST POSITIVE [None]
  - NEPHROSCLEROSIS [None]
  - OLIGURIA [None]
  - PAIN OF SKIN [None]
  - RENAL FAILURE ACUTE [None]
  - SHOCK [None]
  - TOXIC EPIDERMAL NECROLYSIS [None]
